FAERS Safety Report 7365221-7 (Version None)
Quarter: 2011Q1

REPORT INFORMATION
  Report Type: 
  Country: None (occurrence: None)
  Receive Date: 20110321
  Receipt Date: 20110310
  Transmission Date: 20110831
  Serious: Yes (Hospitalization)
  Sender: FDA-Public Use
  Company Number: GB-BRISTOL-MYERS SQUIBB COMPANY-15613946

PATIENT
  Sex: Female
  Weight: 4 kg

DRUGS (3)
  1. BETAMETHASONE [Suspect]
     Route: 064
  2. METFORMIN HCL [Suspect]
     Route: 064
  3. ISOPHANE INSULIN HUMAN [Suspect]
     Dosage: 1DF=8 DF.UNITS NOT SPECIFIED
     Route: 064

REACTIONS (4)
  - HYPOGLYCAEMIA NEONATAL [None]
  - POLYHYDRAMNIOS [None]
  - FOETAL MACROSOMIA [None]
  - MATERNAL DRUGS AFFECTING FOETUS [None]
